FAERS Safety Report 6219123-X (Version None)
Quarter: 2009Q2

REPORT INFORMATION
  Report Type: 
  Country: None (occurrence: None)
  Receive Date: 20090609
  Receipt Date: 20090604
  Transmission Date: 20091009
  Serious: Yes (Congenital Anomaly)
  Sender: FDA-Public Use
  Company Number: FR-EISAI INC.-E2090-00514-SPO-FR

PATIENT

DRUGS (4)
  1. ZONEGRAN [Suspect]
     Route: 064
     Dates: start: 20080312, end: 20080520
  2. ZONEGRAN [Suspect]
     Route: 064
     Dates: start: 20080521, end: 20080820
  3. LEVETIRACETAM [Concomitant]
     Route: 064
     Dates: start: 20071205, end: 20080820
  4. DESOGESTREL AND ETHINYL ESTRADIOL [Concomitant]
     Indication: ORAL CONTRACEPTION
     Route: 064
     Dates: end: 20080101

REACTIONS (3)
  - BRAIN HERNIATION [None]
  - DRUG EXPOSURE DURING PREGNANCY [None]
  - MENINGOCELE [None]
